FAERS Safety Report 4411392-1 (Version None)
Quarter: 2004Q2

REPORT INFORMATION
  Report Type: 
  Country: None (occurrence: None)
  Receive Date: 20040630
  Receipt Date: 20040316
  Transmission Date: 20050107
  Serious: No
  Sender: FDA-Public Use
  Company Number: 04P-163-0249507-00

PATIENT
  Sex: Female

DRUGS (5)
  1. HUMIRA [Suspect]
     Indication: RHEUMATOID ARTHRITIS
     Dosage: 40 MG, 1 IN 1 WK, SUBCUTANEOUS
     Route: 058
     Dates: start: 20030805
  2. LEFLUNOMIDE [Concomitant]
  3. PREDNISONE [Concomitant]
  4. PROPACET 100 [Concomitant]
  5. CALCIUM D3 ^STADA^ [Concomitant]

REACTIONS (1)
  - ERYTHEMA NODOSUM [None]
